FAERS Safety Report 10784567 (Version 1)
Quarter: 2015Q1

REPORT INFORMATION
  Report Type: Spontaneous
  Country: DE (occurrence: DE)
  Receive Date: 20150211
  Receipt Date: 20150211
  Transmission Date: 20150721
  Serious: Yes (Hospitalization)
  Sender: FDA-Public Use
  Company Number: DE-JNJFOC-20150107653

PATIENT
  Age: 62 Year
  Sex: Male

DRUGS (9)
  1. BAYMYCARD [Concomitant]
     Route: 065
     Dates: start: 20141002
  2. XARELTO [Suspect]
     Active Substance: RIVAROXABAN
     Indication: ATRIAL FIBRILLATION
     Route: 065
     Dates: start: 20150105
  3. OMEP [Concomitant]
     Active Substance: OMEPRAZOLE
     Route: 065
     Dates: start: 20140923
  4. KINZALMONO [Concomitant]
     Active Substance: TELMISARTAN
     Route: 065
     Dates: start: 20140828
  5. BISOPROLOL [Concomitant]
     Active Substance: BISOPROLOL
     Route: 065
     Dates: start: 20150105
  6. VERAPAMIL [Concomitant]
     Active Substance: VERAPAMIL HYDROCHLORIDE
     Route: 065
     Dates: start: 20150108
  7. PREDNIHEXAL [Concomitant]
     Active Substance: PREDNISOLONE ACETATE
     Route: 065
     Dates: start: 20140801
  8. XARELTO [Suspect]
     Active Substance: RIVAROXABAN
     Indication: CEREBROVASCULAR ACCIDENT PROPHYLAXIS
     Route: 065
     Dates: start: 20150105
  9. OMEP [Concomitant]
     Active Substance: OMEPRAZOLE
     Route: 065
     Dates: start: 20141103

REACTIONS (1)
  - Dyspnoea [Unknown]

NARRATIVE: CASE EVENT DATE: 20150105
